FAERS Safety Report 23398589 (Version 1)
Quarter: 2024Q1

REPORT INFORMATION
  Report Type: Spontaneous
  Country: US (occurrence: US)
  Receive Date: 20240112
  Receipt Date: 20240112
  Transmission Date: 20240410
  Serious: No
  Sender: FDA-Public Use
  Company Number: US-PERRIGO-23US006552

PATIENT
  Age: 13 Year
  Sex: Female
  Weight: 66.213 kg

DRUGS (6)
  1. IBUPROFEN [Suspect]
     Active Substance: IBUPROFEN
     Indication: Oral pain
     Dosage: 200 MG, QD
     Route: 048
     Dates: start: 20230426, end: 20230427
  2. IBUPROFEN [Suspect]
     Active Substance: IBUPROFEN
     Indication: Headache
  3. AMITRIPTYLINE [Suspect]
     Active Substance: AMITRIPTYLINE
     Indication: Accidental exposure to product
     Dosage: UNK, UNK
     Route: 048
  4. BUSPIRONE [Concomitant]
     Active Substance: BUSPIRONE HYDROCHLORIDE
     Indication: Attention deficit hyperactivity disorder
     Dosage: UNKNOWN, MORNING
     Route: 065
  5. CONCERTA [Concomitant]
     Active Substance: METHYLPHENIDATE HYDROCHLORIDE
     Indication: Attention deficit hyperactivity disorder
     Dosage: UNKNOWN, LUNCH
     Route: 065
  6. CLONIDINE [Concomitant]
     Active Substance: CLONIDINE
     Indication: Attention deficit hyperactivity disorder
     Dosage: UNKNOWN, QHS
     Route: 065

REACTIONS (5)
  - Somnolence [Recovered/Resolved]
  - Confusional state [Recovered/Resolved]
  - Bradykinesia [Recovered/Resolved]
  - Dizziness [Recovered/Resolved]
  - Accidental exposure to product [Unknown]

NARRATIVE: CASE EVENT DATE: 20230426
